FAERS Safety Report 13082933 (Version 2)
Quarter: 2017Q1

REPORT INFORMATION
  Report Type: Report from Study
  Country: AU (occurrence: AU)
  Receive Date: 20170103
  Receipt Date: 20170216
  Transmission Date: 20170428
  Serious: Yes (Other)
  Sender: FDA-Public Use
  Company Number: AU-ROCHE-1873008

PATIENT

DRUGS (4)
  1. VINORELBINE [Suspect]
     Active Substance: VINORELBINE\VINORELBINE TARTRATE
     Indication: BREAST CANCER METASTATIC
     Dosage: 60 MG/M2 (CYCLE 1) OR 80 MG/M2 (FROM CYCLE 2) DAY1 AND DAY8
     Route: 048
  2. TRASTUZUMAB [Suspect]
     Active Substance: TRASTUZUMAB
     Indication: BREAST CANCER METASTATIC
     Dosage: LOADING DOSE, ON DAY 1
     Route: 042
  3. TRASTUZUMAB [Suspect]
     Active Substance: TRASTUZUMAB
     Dosage: STARTING ON DAY 8
     Route: 042
  4. CAPECITABINE. [Suspect]
     Active Substance: CAPECITABINE
     Indication: BREAST CANCER METASTATIC
     Dosage: 2000 (1500 IF MORE THAN OR EQUAL TO 65 YEARS) MG/M2/DAY, DAYS 1-14 EVERY 3 WEEKS
     Route: 048

REACTIONS (10)
  - Infection [Unknown]
  - Diarrhoea [Unknown]
  - Febrile neutropenia [Unknown]
  - Ileus [Unknown]
  - Nausea [Unknown]
  - Blood bilirubin abnormal [Unknown]
  - Neutropenia [Unknown]
  - Stomatitis [Unknown]
  - Palmar-plantar erythrodysaesthesia syndrome [Unknown]
  - Vomiting [Unknown]
